FAERS Safety Report 8493506-X (Version None)
Quarter: 2012Q2

REPORT INFORMATION
  Report Type: 
  Country: None (occurrence: None)
  Receive Date: 20120627
  Receipt Date: 20120612
  Transmission Date: 20120825
  Serious: Yes (Hospitalization)
  Sender: FDA-Public Use
  Company Number: ACO_30462_2012

PATIENT
  Age: 48 Year
  Sex: Female

DRUGS (3)
  1. FAMPYRA (DALFAMPRIDINE) TABLET, 10MG [Suspect]
     Indication: MULTIPLE SCLEROSIS
     Dosage: 10 MG, BID, ORAL ; 10 MG, QD, ORAL
     Route: 048
     Dates: start: 20120518
  2. FAMPYRA (DALFAMPRIDINE) TABLET, 10MG [Suspect]
     Indication: MULTIPLE SCLEROSIS
     Dosage: 10 MG, BID, ORAL ; 10 MG, QD, ORAL
     Route: 048
     Dates: start: 20120201, end: 20120413
  3. MITOXANTRONE [Concomitant]

REACTIONS (10)
  - DRUG INTERACTION [None]
  - BLOOD POTASSIUM DECREASED [None]
  - DISORIENTATION [None]
  - THINKING ABNORMAL [None]
  - PSYCHOMOTOR HYPERACTIVITY [None]
  - MENTAL DISORDER DUE TO A GENERAL MEDICAL CONDITION [None]
  - MEMORY IMPAIRMENT [None]
  - VERTIGO [None]
  - RESTLESSNESS [None]
  - MOOD ALTERED [None]
